FAERS Safety Report 5411416-9 (Version None)
Quarter: 2007Q3

REPORT INFORMATION
  Report Type: 
  Country: None (occurrence: None)
  Receive Date: 20070810
  Receipt Date: 20070806
  Transmission Date: 20080115
  Serious: Yes (Disabling)
  Sender: FDA-Public Use
  Company Number: DE-ASTRAZENECA-2007PK01261

PATIENT
  Age: 44 Year
  Sex: Female
  Weight: 122 kg

DRUGS (4)
  1. SEROQUEL [Suspect]
     Route: 048
     Dates: start: 20050501, end: 20060501
  2. SEROQUEL [Suspect]
     Route: 048
     Dates: start: 20060501, end: 20061101
  3. SEROQUEL [Suspect]
     Route: 048
     Dates: start: 20061101
  4. ENALAPRIL MALEATE [Concomitant]
     Route: 048
     Dates: start: 20050501

REACTIONS (2)
  - METABOLIC SYNDROME [None]
  - WEIGHT INCREASED [None]
